FAERS Safety Report 9598822 (Version 1)
Quarter: 2013Q4

REPORT INFORMATION
  Report Type: Spontaneous
  Country: US (occurrence: US)
  Receive Date: 20131004
  Receipt Date: 20131004
  Transmission Date: 20140711
  Serious: No
  Sender: FDA-Public Use
  Company Number: US-AMGEN-USASP2013025777

PATIENT
  Age: 62 Year
  Sex: Female
  Weight: 83.9 kg

DRUGS (8)
  1. ENBREL [Suspect]
     Indication: PRODUCT USED FOR UNKNOWN INDICATION
     Dosage: 50 MG, QWK
     Route: 058
  2. HYZAAR [Concomitant]
     Dosage: 100-12.5
     Route: 048
  3. ADVIL                              /00044201/ [Concomitant]
     Dosage: 200 MG, UNK
     Route: 048
  4. CENTRUM                            /02217401/ [Concomitant]
     Route: 048
  5. ZINC [Concomitant]
     Dosage: 30 MG, UNK
     Route: 048
  6. CRANBERRY                          /01512301/ [Concomitant]
     Route: 048
  7. PRAVACHOL [Concomitant]
     Dosage: 20 MG, UNK
     Route: 048
  8. BENADRYL                           /00000402/ [Concomitant]
     Dosage: 25 MG, UNK
     Route: 048

REACTIONS (1)
  - Blood cholesterol increased [Unknown]
